FAERS Safety Report 6649165-1 (Version None)
Quarter: 2010Q1

REPORT INFORMATION
  Report Type: 
  Country: None (occurrence: None)
  Receive Date: 20100324
  Receipt Date: 20100317
  Transmission Date: 20100710
  Serious: Yes (Hospitalization, Disabling)
  Sender: FDA-Public Use
  Company Number: A0851655A

PATIENT
  Age: 77 Year
  Sex: Male

DRUGS (3)
  1. SEREVENT [Suspect]
     Indication: ASTHMA
     Route: 055
  2. LISINOPRIL [Concomitant]
  3. METOPROLOL [Concomitant]

REACTIONS (3)
  - ATRIAL FIBRILLATION [None]
  - MEDICATION ERROR [None]
  - TACHYCARDIA [None]
